FAERS Safety Report 18595402 (Version 1)
Quarter: 2020Q4

REPORT INFORMATION
  Report Type: Spontaneous
  Country: US (occurrence: US)
  Receive Date: 20201209
  Receipt Date: 20201209
  Transmission Date: 20210114
  Serious: No
  Sender: FDA-Public Use
  Company Number: None

PATIENT
  Age: 38 Year
  Sex: Female
  Weight: 83.01 kg

DRUGS (2)
  1. HUMIRA [Suspect]
     Active Substance: ADALIMUMAB
     Indication: PRODUCT USED FOR UNKNOWN INDICATION
     Dosage: OTHER FREQUENCY:EVERY2WEEKS AS DIRECTED
     Route: 058
     Dates: start: 202009
  2. HUMIRA [Suspect]
     Active Substance: ADALIMUMAB
     Indication: RHEUMATOID ARTHRITIS
     Dosage: OTHER FREQUENCY:EVERY2WEEKS AS DIRECTED
     Route: 058
     Dates: start: 202009

REACTIONS (1)
  - Bacterial infection [None]
